FAERS Safety Report 4332966-2 (Version None)
Quarter: 2004Q1

REPORT INFORMATION
  Report Type: 
  Country: None (occurrence: None)
  Receive Date: 20040330
  Receipt Date: 20040315
  Transmission Date: 20041129
  Serious: Yes (Hospitalization)
  Sender: FDA-Public Use
  Company Number: US-JNJFOC-20040303741

PATIENT
  Age: 64 Year
  Sex: Female
  Weight: 88.4514 kg

DRUGS (9)
  1. INFLIXIMAB (INFLIXIMAB, RECOMBINANT) LYOPHILIZED POWDER [Suspect]
     Indication: RHEUMATOID ARTHRITIS
     Dosage: INTRAVENOUS
     Route: 042
     Dates: start: 20021017
  2. CELEBREX [Concomitant]
  3. PREDNISONE [Concomitant]
  4. POTASSIUM (POTASSIUM) [Concomitant]
  5. HYDROXYZINE [Concomitant]
  6. CIMETIDINE [Concomitant]
  7. ATENOLOL [Concomitant]
  8. HYDROCHLOROTHIAZIDE [Concomitant]
  9. ACCUPRIL [Concomitant]

REACTIONS (2)
  - BLOOD POTASSIUM ABNORMAL [None]
  - FULL BLOOD COUNT DECREASED [None]
